FAERS Safety Report 9374364 (Version 1)
Quarter: 2013Q2

REPORT INFORMATION
  Report Type: Spontaneous
  Country: US (occurrence: None)
  Receive Date: 20130627
  Receipt Date: 20130627
  Transmission Date: 20140414
  Serious: Yes (Other)
  Sender: FDA-Public Use
  Company Number: None

PATIENT
  Age: 62 Year
  Sex: Female

DRUGS (8)
  1. LETAIRIS [Suspect]
     Indication: PULMONARY HYPERTENSION
     Route: 048
     Dates: start: 201212, end: 201306
  2. WARFARIN [Concomitant]
  3. FUROSEMIDE [Concomitant]
  4. RCI [Concomitant]
  5. NIFEDIPINE [Concomitant]
  6. OMEPRAZOLE [Concomitant]
  7. URSODIOL [Concomitant]
  8. SILDENAFIL [Concomitant]

REACTIONS (3)
  - Oedema peripheral [None]
  - Dyspnoea [None]
  - Oedema peripheral [None]
